FAERS Safety Report 5687594-3 (Version None)
Quarter: 2008Q1

REPORT INFORMATION
  Report Type: 
  Country: None (occurrence: None)
  Receive Date: 20080328
  Receipt Date: 20061005
  Transmission Date: 20080703
  Serious: No
  Sender: FDA-Public Use
  Company Number: US-BAYER-US-2006-030329

PATIENT
  Age: 38 Year
  Sex: Female
  Weight: 108 kg

DRUGS (3)
  1. MIRENA [Suspect]
     Indication: CONTRACEPTION
     Route: 015
     Dates: start: 20060928
  2. LEXAPRO [Concomitant]
     Indication: ANXIETY
  3. ATIVAN [Concomitant]

REACTIONS (3)
  - ABDOMINAL PAIN [None]
  - IUCD COMPLICATION [None]
  - PROCEDURAL PAIN [None]
